FAERS Safety Report 12862112 (Version 2)
Quarter: 2016Q4

REPORT INFORMATION
  Report Type: Spontaneous
  Country: JP (occurrence: JP)
  Receive Date: 20161019
  Receipt Date: 20161102
  Transmission Date: 20170207
  Serious: Yes (Hospitalization)
  Sender: FDA-Public Use
  Company Number: JP-JNJFOC-20161007600

PATIENT
  Age: 32 Year
  Sex: Male

DRUGS (1)
  1. XEPLION [Suspect]
     Active Substance: PALIPERIDONE PALMITATE
     Indication: PRODUCT USED FOR UNKNOWN INDICATION
     Route: 030
     Dates: start: 20160708, end: 20160708

REACTIONS (2)
  - Hyperosmolar hyperglycaemic state [Recovering/Resolving]
  - Treatment noncompliance [Unknown]

NARRATIVE: CASE EVENT DATE: 20160708
